FAERS Safety Report 19430383 (Version 2)
Quarter: 2021Q3

REPORT INFORMATION
  Report Type: Spontaneous
  Country: US (occurrence: US)
  Receive Date: 20210617
  Receipt Date: 20210805
  Transmission Date: 20211014
  Serious: No
  Sender: FDA-Public Use
  Company Number: US-SA-2021SA198902

PATIENT
  Age: 35 Year
  Sex: Female

DRUGS (2)
  1. DUPIXENT [Suspect]
     Active Substance: DUPILUMAB
     Indication: DERMATITIS ALLERGIC
     Dosage: UNK
     Dates: start: 2021, end: 2021
  2. DUPIXENT [Suspect]
     Active Substance: DUPILUMAB
     Indication: RASH
     Dosage: 300 MG, QOW
     Route: 058
     Dates: start: 20210518

REACTIONS (3)
  - Dry eye [Unknown]
  - Product use in unapproved indication [Unknown]
  - Ocular hyperaemia [Recovering/Resolving]

NARRATIVE: CASE EVENT DATE: 20210518
